FAERS Safety Report 21042437 (Version 1)
Quarter: 2022Q3

REPORT INFORMATION
  Report Type: Spontaneous
  Country: US (occurrence: None)
  Receive Date: 20220701
  Receipt Date: 20220701
  Transmission Date: 20221027
  Serious: Yes (Life-Threatening)
  Sender: FDA-Public Use
  Company Number: None

PATIENT
  Age: 60 Year
  Sex: Female
  Weight: 81.9 kg

DRUGS (1)
  1. ANDEXXA [Suspect]
     Active Substance: ANDEXANET ALFA
     Indication: Product used for unknown indication
     Dates: start: 20220601, end: 20220601

REACTIONS (6)
  - Intestinal ischaemia [None]
  - Disseminated intravascular coagulation [None]
  - Myocardial infarction [None]
  - Subarachnoid haemorrhage [None]
  - Embolic stroke [None]
  - Cerebral ischaemia [None]

NARRATIVE: CASE EVENT DATE: 20220602
